FAERS Safety Report 6419707-X (Version None)
Quarter: 2009Q4

REPORT INFORMATION
  Report Type: 
  Country: None (occurrence: None)
  Receive Date: 20091029
  Receipt Date: 20091016
  Transmission Date: 20100525
  Serious: Yes (Life-Threatening)
  Sender: FDA-Public Use
  Company Number: B0600485A

PATIENT
  Age: 68 Year
  Sex: Male

DRUGS (2)
  1. ARTIST [Suspect]
     Indication: DRUG USE FOR UNKNOWN INDICATION
     Route: 065
  2. BEPRICOR [Suspect]
     Indication: ARRHYTHMIA
     Route: 065

REACTIONS (1)
  - SINUS ARREST [None]
